FAERS Safety Report 26123519 (Version 1)
Quarter: 2025Q4

REPORT INFORMATION
  Report Type: Report from Study
  Country: GT (occurrence: GT)
  Receive Date: 20251204
  Receipt Date: 20251204
  Transmission Date: 20260118
  Serious: Yes (Death, Other)
  Sender: AMGEN
  Company Number: GT-SERVIER-S25017442

PATIENT
  Age: 83 Year
  Sex: Male
  Weight: 61 kg

DRUGS (5)
  1. IVABRADINE [Suspect]
     Active Substance: IVABRADINE
     Indication: Cardiovascular disorder
     Dosage: 7.5 MG, QD
     Route: 048
     Dates: start: 202303, end: 202501
  2. IVABRADINE [Suspect]
     Active Substance: IVABRADINE
     Indication: Off label use
     Dosage: 3.75 MG, QD
     Route: 048
     Dates: start: 202501, end: 20250708
  3. TRADJENTA [Concomitant]
     Active Substance: LINAGLIPTIN
     Indication: Diabetes prophylaxis
     Dosage: UNK
     Route: 048
     Dates: start: 2023, end: 20250708
  4. LANSOPRAZOLE [Concomitant]
     Active Substance: LANSOPRAZOLE
     Indication: Prophylaxis
     Dosage: 30 MG, QD
     Route: 048
     Dates: end: 20250708
  5. XARELTO [Concomitant]
     Active Substance: RIVAROXABAN
     Indication: Cardiovascular disorder
     Dosage: 10 MG, QD
     Route: 048
     Dates: start: 2015, end: 20250708

REACTIONS (3)
  - Death [Fatal]
  - Weight decreased [Unknown]
  - Product use issue [Recovered/Resolved]

NARRATIVE: CASE EVENT DATE: 20250101
